FAERS Safety Report 22996245 (Version 3)
Quarter: 2024Q3

REPORT INFORMATION
  Report Type: Report from Study
  Country: US (occurrence: US)
  Receive Date: 20230927
  Receipt Date: 20240826
  Transmission Date: 20241017
  Serious: No
  Sender: ABBVIE
  Company Number: US-ABBVIE-5419620

PATIENT
  Sex: Male

DRUGS (2)
  1. IMBRUVICA [Suspect]
     Active Substance: IBRUTINIB
     Indication: Chronic lymphocytic leukaemia
     Route: 048
  2. IMBRUVICA [Suspect]
     Active Substance: IBRUTINIB
     Indication: Chronic lymphocytic leukaemia
     Dosage: RESTARTED THERAPY
     Route: 048

REACTIONS (5)
  - Increased tendency to bruise [Unknown]
  - Memory impairment [Unknown]
  - Anger [Unknown]
  - Skin laceration [Unknown]
  - Fatigue [Unknown]
